FAERS Safety Report 6547643-7 (Version None)
Quarter: 2010Q2

REPORT INFORMATION
  Report Type: 
  Country: None (occurrence: None)
  Receive Date: 20100123
  Receipt Date: 20100114
  Transmission Date: 20101027
  Serious: Yes (Other)
  Sender: FDA-Public Use
  Company Number: US-JNJFOC-20091005238

PATIENT
  Age: 2 Month
  Sex: Female

DRUGS (2)
  1. CONCENTRATED TYLENOL INFANT DROPS [Suspect]
     Route: 048
  2. CONCENTRATED TYLENOL INFANT DROPS [Suspect]
     Indication: TEETHING
     Dosage: FIRST TIME USE
     Route: 048

REACTIONS (4)
  - DIARRHOEA [None]
  - PRODUCT QUALITY ISSUE [None]
  - TRANSMISSION OF AN INFECTIOUS AGENT VIA A MEDICINAL PRODUCT [None]
  - VOMITING PROJECTILE [None]
